FAERS Safety Report 15794214 (Version 3)
Quarter: 2019Q2

REPORT INFORMATION
  Report Type: Spontaneous
  Country: AU (occurrence: AU)
  Receive Date: 20190107
  Receipt Date: 20190408
  Transmission Date: 20190711
  Serious: Yes (Other)
  Sender: FDA-Public Use
  Company Number: AU-PFIZER INC-2018524621

PATIENT
  Age: 31 Year
  Sex: Male
  Weight: 74.2 kg

DRUGS (6)
  1. CLOPINE [Suspect]
     Active Substance: CLOZAPINE
     Dosage: 300 MG, UNK
     Route: 048
  2. ETOPOSIDE. [Suspect]
     Active Substance: ETOPOSIDE
     Indication: TESTIS CANCER
     Dosage: UNK
  3. BLEOMYCIN SULFATE [Suspect]
     Active Substance: BLEOMYCIN SULFATE
     Indication: TESTIS CANCER
     Dosage: UNK
  4. CLOPINE [Suspect]
     Active Substance: CLOZAPINE
     Dosage: 325 MG, UNK
     Route: 048
  5. CISPLATIN. [Suspect]
     Active Substance: CISPLATIN
     Indication: TESTIS CANCER
     Dosage: UNK
  6. CLOPINE [Suspect]
     Active Substance: CLOZAPINE
     Indication: SCHIZOPHRENIA
     Dosage: UNK
     Route: 048
     Dates: start: 20141016

REACTIONS (5)
  - Weight decreased [Unknown]
  - Testicular cancer metastatic [Unknown]
  - Neutropenia [Recovered/Resolved]
  - Agranulocytosis [Recovered/Resolved]
  - Nausea [Unknown]

NARRATIVE: CASE EVENT DATE: 20190102
